FAERS Safety Report 11841462 (Version 1)
Quarter: 2015Q4

REPORT INFORMATION
  Report Type: Report from Study
  Country: US (occurrence: US)
  Receive Date: 20151216
  Receipt Date: 20151216
  Transmission Date: 20160305
  Serious: Yes (Other)
  Sender: FDA-Public Use
  Company Number: US-ABBVIE-15K-163-1518788-00

PATIENT
  Age: 15 Year
  Sex: Male

DRUGS (2)
  1. HUMIRA [Suspect]
     Active Substance: ADALIMUMAB
     Route: 058
     Dates: start: 2015
  2. HUMIRA [Suspect]
     Active Substance: ADALIMUMAB
     Indication: CROHN^S DISEASE
     Route: 058
     Dates: start: 2010

REACTIONS (7)
  - Anal abscess [Unknown]
  - Drug specific antibody present [Unknown]
  - Anal abscess [Unknown]
  - Anal abscess [Unknown]
  - Impaired healing [Unknown]
  - Anal fistula [Unknown]
  - Anal fistula [Unknown]

NARRATIVE: CASE EVENT DATE: 201403
